FAERS Safety Report 5253388-6 (Version None)
Quarter: 2007Q1

REPORT INFORMATION
  Report Type: 
  Country: None (occurrence: None)
  Receive Date: 20070301
  Receipt Date: 20070219
  Transmission Date: 20070707
  Serious: Yes (Life-Threatening, Hospitalization)
  Sender: FDA-Public Use
  Company Number: US-AMGEN-US175035

PATIENT
  Sex: Male

DRUGS (21)
  1. PANITUMUMAB [Suspect]
     Indication: COLORECTAL CANCER
     Route: 042
     Dates: start: 20051024
  2. AVASTIN [Concomitant]
     Route: 042
  3. FLUOROURACIL [Concomitant]
     Route: 042
  4. LEUCOVORIN CALCIUM [Concomitant]
     Route: 042
  5. PERCOCET [Concomitant]
     Route: 065
  6. NORVASC [Concomitant]
     Route: 065
  7. MORPHINE [Concomitant]
     Route: 065
  8. IBUPROFEN [Concomitant]
     Route: 065
  9. VALIUM [Concomitant]
     Route: 065
  10. COMPAZINE [Concomitant]
     Route: 065
  11. K-DUR 10 [Concomitant]
     Route: 065
  12. DILAUDID [Concomitant]
     Route: 042
  13. MEGACE [Concomitant]
     Route: 065
  14. QUESTRAN [Concomitant]
     Route: 065
  15. MAGNESIUM OXIDE [Concomitant]
     Route: 065
  16. DESITIN [Concomitant]
     Route: 061
  17. LIDOCAINE [Concomitant]
     Route: 061
  18. ZINC OXIDE [Concomitant]
     Route: 061
  19. CELEBREX [Concomitant]
     Route: 065
  20. AVINZA [Concomitant]
     Route: 065
  21. OXALIPLATIN [Concomitant]
     Route: 042

REACTIONS (6)
  - ACUTE RESPIRATORY DISTRESS SYNDROME [None]
  - METABOLIC ENCEPHALOPATHY [None]
  - PNEUMONIA BACTERIAL [None]
  - PULMONARY EMBOLISM [None]
  - RENAL FAILURE ACUTE [None]
  - SEPTIC SHOCK [None]
